FAERS Safety Report 15787516 (Version 4)
Quarter: 2019Q2

REPORT INFORMATION
  Report Type: Spontaneous
  Country: US (occurrence: US)
  Receive Date: 20190103
  Receipt Date: 20190531
  Transmission Date: 20190711
  Serious: No
  Sender: FDA-Public Use
  Company Number: US-ACTELION-A-US2018-183730

PATIENT
  Sex: Female

DRUGS (1)
  1. OPSUMIT [Suspect]
     Active Substance: MACITENTAN
     Indication: PULMONARY ARTERIAL HYPERTENSION
     Dosage: 10 MG, QD
     Route: 048
     Dates: start: 20181106

REACTIONS (8)
  - Constipation [Unknown]
  - Infection [Unknown]
  - Myalgia [Unknown]
  - Discomfort [Unknown]
  - Necrosis [Unknown]
  - Bacterial infection [Unknown]
  - Flatulence [Unknown]
  - Muscle tightness [Unknown]
